FAERS Safety Report 19399231 (Version 1)
Quarter: 2021Q2

REPORT INFORMATION
  Report Type: Spontaneous
  Country: US (occurrence: US)
  Receive Date: 20210610
  Receipt Date: 20210610
  Transmission Date: 20210717
  Serious: Yes (Hospitalization)
  Sender: FDA-Public Use
  Company Number: US-MYLANLABS-2021M1033559

PATIENT
  Age: 13 Year
  Sex: Female

DRUGS (11)
  1. PREDNISONE. [Suspect]
     Active Substance: PREDNISONE
     Indication: STEROID THERAPY
     Dosage: 20 MILLIGRAM, QD
     Route: 048
  2. PREDNISONE. [Suspect]
     Active Substance: PREDNISONE
     Dosage: 10 MILLIGRAM, QD
     Route: 048
  3. LIDOCAINE. [Concomitant]
     Active Substance: LIDOCAINE
     Indication: GENITAL PAIN
     Dosage: UNK
     Route: 061
  4. PREDNISONE. [Suspect]
     Active Substance: PREDNISONE
     Indication: VULVAL OEDEMA
     Dosage: 40 MILLIGRAM, QD
     Route: 048
  5. LIDOCAINE. [Concomitant]
     Active Substance: LIDOCAINE
     Indication: GENITAL PAIN
     Dosage: UNK
     Route: 061
  6. CLOBETASOL [Suspect]
     Active Substance: CLOBETASOL
     Indication: GENITAL LABIAL ADHESIONS
     Dosage: UNK
     Route: 061
  7. CLOBETASOL [Suspect]
     Active Substance: CLOBETASOL
     Indication: STEROID THERAPY
  8. HUMAN GROWTH HORMONE, RECOMBINANT [Concomitant]
     Active Substance: SOMATROPIN
     Indication: PRODUCT USED FOR UNKNOWN INDICATION
     Dosage: UNK
     Route: 065
  9. PREDNISONE. [Suspect]
     Active Substance: PREDNISONE
     Indication: GENITAL ULCERATION
     Dosage: 45 MILLIGRAM, QD
     Route: 048
  10. PYRIDIUM [Concomitant]
     Active Substance: PHENAZOPYRIDINE
     Indication: DYSURIA
     Dosage: UNK
     Route: 065
  11. BENZOCAINE. [Concomitant]
     Active Substance: BENZOCAINE
     Indication: GENITAL PAIN
     Dosage: UNK
     Route: 065

REACTIONS (1)
  - Drug ineffective [Unknown]
